FAERS Safety Report 19891836 (Version 1)
Quarter: 2021Q3

REPORT INFORMATION
  Report Type: Report from Study
  Country: US (occurrence: US)
  Receive Date: 20210928
  Receipt Date: 20210928
  Transmission Date: 20211014
  Serious: Yes (Other)
  Sender: FDA-Public Use
  Company Number: US-JAZZ-2020-US-003291

PATIENT
  Age: 41 Year
  Sex: Female

DRUGS (28)
  1. LINZESS [Concomitant]
     Active Substance: LINACLOTIDE
  2. CALCITRATE PLUS D [Concomitant]
  3. FLUTICASONE PROPIONATE. [Concomitant]
     Active Substance: FLUTICASONE PROPIONATE
  4. RESTASIS [Concomitant]
     Active Substance: CYCLOSPORINE
  5. XYREM [Suspect]
     Active Substance: SODIUM OXYBATE
     Dosage: DOSE ADJUSTMENTS
     Route: 048
     Dates: start: 201910, end: 201910
  6. XYREM [Suspect]
     Active Substance: SODIUM OXYBATE
     Dosage: 4.5 GRAM, BID
     Route: 048
     Dates: start: 201910, end: 201912
  7. VITAMIN B12 [Concomitant]
     Active Substance: CYANOCOBALAMIN
  8. ESTRACE [Concomitant]
     Active Substance: ESTRADIOL
  9. ARMODAFINIL. [Concomitant]
     Active Substance: ARMODAFINIL
  10. CLONAZEPAM. [Concomitant]
     Active Substance: CLONAZEPAM
  11. CALCIUM CITRATE [Concomitant]
     Active Substance: CALCIUM CITRATE
  12. CETIRIZINE HCL [Concomitant]
     Active Substance: CETIRIZINE HYDROCHLORIDE
  13. MAGNESIUM OXIDE. [Concomitant]
     Active Substance: MAGNESIUM OXIDE
  14. PROTONIX [OMEPRAZOLE] [Concomitant]
     Active Substance: OMEPRAZOLE
  15. BETAMETHASONE. [Concomitant]
     Active Substance: BETAMETHASONE
  16. CLOBETASOL [Concomitant]
     Active Substance: CLOBETASOL
  17. METRONIDAZOLE. [Concomitant]
     Active Substance: METRONIDAZOLE
  18. TRIAMCINOLONE [Concomitant]
     Active Substance: TRIAMCINOLONE
  19. ALIGN [Concomitant]
     Active Substance: BIFIDOBACTERIUM LONGUM SUBSP. INFANTIS
  20. EFFEXOR [Concomitant]
     Active Substance: VENLAFAXINE HYDROCHLORIDE
  21. KETOCONAZOLE. [Concomitant]
     Active Substance: KETOCONAZOLE
  22. ROBAXIN [Concomitant]
     Active Substance: METHOCARBAMOL
  23. VITAMIN D3 [Concomitant]
     Active Substance: CHOLECALCIFEROL
  24. TUMS EX [Concomitant]
     Active Substance: CALCIUM CARBONATE
  25. XYREM [Suspect]
     Active Substance: SODIUM OXYBATE
     Indication: NARCOLEPSY
     Dosage: 2.25 GRAM, BID
     Route: 048
     Dates: start: 201909, end: 201910
  26. VYVANSE [Concomitant]
     Active Substance: LISDEXAMFETAMINE DIMESYLATE
  27. FERROUS SULFATE. [Concomitant]
     Active Substance: FERROUS SULFATE
  28. VIVELLE?DOT [Concomitant]
     Active Substance: ESTRADIOL

REACTIONS (2)
  - Blindness [Not Recovered/Not Resolved]
  - Migraine [Unknown]

NARRATIVE: CASE EVENT DATE: 202001
